FAERS Safety Report 4561934-0 (Version None)
Quarter: 2005Q1

REPORT INFORMATION
  Report Type: 
  Country: None (occurrence: None)
  Receive Date: 20050125
  Receipt Date: 20050118
  Transmission Date: 20050727
  Serious: Yes (Other)
  Sender: FDA-Public Use
  Company Number: 163-20785-04100685

PATIENT
  Age: 54 Year
  Sex: Male

DRUGS (6)
  1. THALOMID [Suspect]
     Indication: MULTIPLE MYELOMA
     Dosage: SEE IMAGE
     Route: 048
     Dates: start: 19991001, end: 19991101
  2. THALOMID [Suspect]
     Indication: MULTIPLE MYELOMA
     Dosage: SEE IMAGE
     Route: 048
     Dates: start: 20000801, end: 20001201
  3. BACTRIM [Concomitant]
  4. COUMADIN [Concomitant]
  5. VITAMIN B6 [Concomitant]
  6. SENOKOT [Concomitant]

REACTIONS (11)
  - ARTHRITIS [None]
  - CATARACT [None]
  - CONDITION AGGRAVATED [None]
  - CONSTIPATION [None]
  - DYSPNOEA [None]
  - MYCOBACTERIAL INFECTION [None]
  - PULMONARY EMBOLISM [None]
  - SEDATION [None]
  - SOMNOLENCE [None]
  - TREMOR [None]
  - VOCAL CORD NEOPLASM [None]
